FAERS Safety Report 9506991 (Version 1)
Quarter: 2013Q3

REPORT INFORMATION
  Report Type: Spontaneous
  Country: TR (occurrence: TR)
  Receive Date: 20130909
  Receipt Date: 20130909
  Transmission Date: 20140515
  Serious: Yes (Other)
  Sender: FDA-Public Use
  Company Number: TR-SP-2013-09367

PATIENT
  Age: 70 Year
  Sex: Male

DRUGS (1)
  1. BCG THERAPEUTICS [Suspect]
     Indication: BLADDER CANCER
     Dosage: NOT REPORTED
     Route: 043

REACTIONS (3)
  - Prostatitis [Unknown]
  - Dysuria [Unknown]
  - Pyuria [Unknown]
